FAERS Safety Report 12642187 (Version 4)
Quarter: 2018Q4

REPORT INFORMATION
  Report Type: Spontaneous
  Country: US (occurrence: US)
  Receive Date: 20160810
  Receipt Date: 20181011
  Transmission Date: 20190204
  Serious: Yes (Other)
  Sender: FDA-Public Use
  Company Number: US-009507513-1608USA002956

PATIENT
  Sex: Female
  Weight: 59.55 kg

DRUGS (1)
  1. IMPLANON [Suspect]
     Active Substance: ETONOGESTREL
     Indication: CONTRACEPTION
     Dosage: 68 MG / 3 YEARS
     Route: 059
     Dates: start: 20130530, end: 20160729

REACTIONS (11)
  - Complication of device removal [Recovered/Resolved]
  - Incorrect product administration duration [Recovered/Resolved]
  - Arthralgia [Unknown]
  - Complication associated with device [Recovered/Resolved]
  - Partner stress [Recovering/Resolving]
  - Anxiety [Unknown]
  - Device dislocation [Recovered/Resolved]
  - Bronchitis [Unknown]
  - Menstruation irregular [Unknown]
  - Hypertension [Unknown]
  - Muscle twitching [Unknown]

NARRATIVE: CASE EVENT DATE: 2013
